FAERS Safety Report 17065422 (Version 7)
Quarter: 2022Q2

REPORT INFORMATION
  Report Type: Report from Study
  Country: BR (occurrence: BR)
  Receive Date: 20191122
  Receipt Date: 20220628
  Transmission Date: 20220720
  Serious: Yes (Hospitalization, Other)
  Sender: FDA-Public Use
  Company Number: BR-GLAXOSMITHKLINE-BR2016GSK027013

PATIENT

DRUGS (5)
  1. BELIMUMAB [Suspect]
     Active Substance: BELIMUMAB
     Indication: Systemic lupus erythematosus
     Dosage: 520 MG, CYC
     Route: 042
     Dates: start: 20141013
  2. AZATHIOPRINE [Concomitant]
     Active Substance: AZATHIOPRINE
     Indication: Product used for unknown indication
     Dosage: UNK
  3. HYDROXYCHLOROQUINE SULFATE [Concomitant]
     Active Substance: HYDROXYCHLOROQUINE SULFATE
     Indication: Product used for unknown indication
     Dosage: UNK
  4. PREDNISONE [Concomitant]
     Active Substance: PREDNISONE
     Indication: Product used for unknown indication
     Dosage: UNK
  5. HYDROXYCHLOROQUINE [Concomitant]
     Active Substance: HYDROXYCHLOROQUINE
     Indication: Product used for unknown indication
     Dosage: 400 MG, UNK, Z (5 DAYS A WEEK)

REACTIONS (24)
  - Pneumonia [Unknown]
  - Complication of pregnancy [Unknown]
  - Systemic lupus erythematosus [Unknown]
  - Abortion spontaneous [Unknown]
  - Haemorrhage in pregnancy [Recovered/Resolved]
  - Complement factor C3 decreased [Unknown]
  - Urinary tract infection [Not Recovered/Not Resolved]
  - Vomiting [Recovered/Resolved]
  - Weight decreased [Unknown]
  - Dysuria [Unknown]
  - Weight increased [Unknown]
  - Back pain [Unknown]
  - Nervousness [Unknown]
  - Drug exposure before pregnancy [Recovered/Resolved]
  - Malaise [Unknown]
  - Live birth [Unknown]
  - Maternal exposure during breast feeding [Unknown]
  - Exposure during pregnancy [Unknown]
  - Overdose [Unknown]
  - Underdose [Unknown]
  - Circumstance or information capable of leading to medication error [Recovered/Resolved]
  - Inappropriate schedule of product administration [Recovered/Resolved]
  - Product dose omission issue [Not Recovered/Not Resolved]
  - Inappropriate schedule of product administration [Unknown]

NARRATIVE: CASE EVENT DATE: 20160920
